FAERS Safety Report 4953514-X (Version None)
Quarter: 2006Q1

REPORT INFORMATION
  Report Type: 
  Country: None (occurrence: None)
  Receive Date: 20060324
  Receipt Date: 20060308
  Transmission Date: 20060701
  Serious: Yes (Hospitalization)
  Sender: FDA-Public Use
  Company Number: US-ROCHE-439417

PATIENT
  Age: 80 Year
  Sex: Female
  Weight: 68 kg

DRUGS (6)
  1. CAPECITABINE [Suspect]
     Indication: COLORECTAL CANCER
     Dosage: ON DAYS 1-7 EVERY TWO WEEKS
     Route: 048
     Dates: start: 20060112
  2. BEVACIZUMAB [Suspect]
     Indication: COLORECTAL CANCER
     Route: 042
     Dates: start: 20060112, end: 20060219
  3. PROTONIX [Concomitant]
  4. SYNTHROID [Concomitant]
  5. OXYCODONE [Concomitant]
  6. STOOL SOFTENER [Concomitant]

REACTIONS (2)
  - DIVERTICULAR PERFORATION [None]
  - PAIN [None]
